FAERS Safety Report 20879315 (Version 2)
Quarter: 2022Q2

REPORT INFORMATION
  Report Type: Spontaneous
  Country: US (occurrence: US)
  Receive Date: 20220526
  Receipt Date: 20220527
  Transmission Date: 20220720
  Serious: No
  Sender: FDA-Public Use
  Company Number: US-ALKERMES INC.-ALK-2022-002492

PATIENT

DRUGS (1)
  1. ARISTADA [Suspect]
     Active Substance: ARIPIPRAZOLE LAUROXIL
     Indication: Product used for unknown indication
     Dosage: UNK
     Route: 030

REACTIONS (5)
  - Pain in extremity [Unknown]
  - Hypoaesthesia [Unknown]
  - Product administration error [Recovered/Resolved]
  - Sciatica [Not Recovered/Not Resolved]
  - Injection site pain [Unknown]
